FAERS Safety Report 18050274 (Version 1)
Quarter: 2020Q3

REPORT INFORMATION
  Report Type: Spontaneous
  Country: US (occurrence: US)
  Receive Date: 20200721
  Receipt Date: 20200721
  Transmission Date: 20201103
  Serious: Yes (Other)
  Sender: FDA-Public Use
  Company Number: US-TAKEDA-2020TUS031568

PATIENT

DRUGS (1)
  1. ULORIC [Suspect]
     Active Substance: FEBUXOSTAT
     Indication: CHONDROCALCINOSIS PYROPHOSPHATE
     Dosage: 80 MILLIGRAM
     Route: 048
     Dates: start: 20110106

REACTIONS (1)
  - Myocardial infarction [Unknown]
